FAERS Safety Report 19639351 (Version 1)
Quarter: 2021Q3

REPORT INFORMATION
  Report Type: Spontaneous
  Country: US (occurrence: US)
  Receive Date: 20210730
  Receipt Date: 20210730
  Transmission Date: 20211014
  Serious: Yes (Other)
  Sender: FDA-Public Use
  Company Number: US-ASTRAZENECA-2021A646740

PATIENT
  Age: 19473 Day
  Sex: Male

DRUGS (1)
  1. IRESSA [Suspect]
     Active Substance: GEFITINIB
     Route: 048
     Dates: start: 202105, end: 202107

REACTIONS (2)
  - Drug ineffective [Unknown]
  - Gene mutation [Unknown]

NARRATIVE: CASE EVENT DATE: 20210722
